FAERS Safety Report 15141880 (Version 1)
Quarter: 2018Q3

REPORT INFORMATION
  Report Type: Spontaneous
  Country: US (occurrence: US)
  Receive Date: 20180618
  Receipt Date: 20180618
  Transmission Date: 20181010
  Serious: Yes (Hospitalization)
  Sender: FDA-Public Use
  Company Number: None

PATIENT
  Age: 18 Year
  Sex: Male

DRUGS (2)
  1. ALTERA HANDSET, CAYSTON [Concomitant]
  2. DEKAS ESSENTIAL CAPSULE [Suspect]
     Active Substance: VITAMINS
     Indication: CYSTIC FIBROSIS
     Route: 048
     Dates: start: 20171108

REACTIONS (1)
  - Hospitalisation [None]

NARRATIVE: CASE EVENT DATE: 201805
